FAERS Safety Report 7791471-1 (Version None)
Quarter: 2011Q4

REPORT INFORMATION
  Report Type: 
  Country: None (occurrence: None)
  Receive Date: 20111003
  Receipt Date: 20110923
  Transmission Date: 20120403
  Serious: Yes (Other)
  Sender: FDA-Public Use
  Company Number: US-ASTRAZENECA-2009UW00357

PATIENT
  Age: 57 Year
  Sex: Female
  Weight: 98.9 kg

DRUGS (22)
  1. SEROQUEL [Suspect]
     Indication: PSYCHOTIC DISORDER
     Dosage: 200 MG/400 MG
     Route: 048
     Dates: start: 20040101
  2. SEROQUEL [Suspect]
     Route: 048
  3. HALDOL [Concomitant]
     Dates: start: 19960101
  4. XANAX [Concomitant]
  5. IBUPROFEN [Concomitant]
  6. SEROQUEL [Suspect]
     Dosage: 200 MG TK 1 T PO BID AND TWO TS PO QHS UTD
     Route: 048
     Dates: start: 20060630
  7. SEROQUEL [Suspect]
     Indication: DEPRESSION
     Dosage: 200 MG/400 MG
     Route: 048
     Dates: start: 20040101
  8. SEROQUEL [Suspect]
     Dosage: 200 MG TK 1 T PO BID AND TWO TS PO QHS UTD
     Route: 048
     Dates: start: 20060630
  9. HYDROXYZINE [Concomitant]
     Route: 048
     Dates: start: 20060630
  10. METHADONE HCL [Concomitant]
     Dates: start: 20070227
  11. SEROQUEL [Suspect]
     Dosage: 200 MG TK 1 T PO BID AND TWO TS PO QHS UTD
     Route: 048
     Dates: start: 20060630
  12. SEROQUEL [Suspect]
     Dosage: 200 MG TK 1 T PO BID AND TWO TS PO QHS UTD
     Route: 048
     Dates: start: 20060630
  13. SEROQUEL [Suspect]
     Route: 048
  14. SEROQUEL [Suspect]
     Indication: BIPOLAR DISORDER
     Dosage: 200 MG/400 MG
     Route: 048
     Dates: start: 20040101
  15. ABILIFY [Concomitant]
     Dates: start: 20070101
  16. CELEXA [Concomitant]
     Dates: start: 20070501
  17. LIPITOR [Concomitant]
     Dates: start: 20070420
  18. SEROQUEL [Suspect]
     Route: 048
  19. XANAX [Concomitant]
     Dosage: 0.25 MG TK ONE T PO QHS PRN
     Dates: start: 20060630
  20. CELEXA [Concomitant]
     Route: 048
     Dates: start: 20060610
  21. SEROQUEL [Suspect]
     Indication: MANIA
     Dosage: 200 MG/400 MG
     Route: 048
     Dates: start: 20040101
  22. SEROQUEL [Suspect]
     Route: 048

REACTIONS (15)
  - SUICIDAL IDEATION [None]
  - IMPAIRED WORK ABILITY [None]
  - DEPRESSION [None]
  - BLOOD CHOLESTEROL INCREASED [None]
  - ANXIETY [None]
  - ABNORMAL BEHAVIOUR [None]
  - ACTIVITIES OF DAILY LIVING IMPAIRED [None]
  - MYOCARDIAL INFARCTION [None]
  - TACHYPHRENIA [None]
  - ASTHENIA [None]
  - MENTAL STATUS CHANGES [None]
  - DRUG DOSE OMISSION [None]
  - OBESITY [None]
  - INSOMNIA [None]
  - DIABETES MELLITUS [None]
